FAERS Safety Report 7466718-1 (Version None)
Quarter: 2011Q1

REPORT INFORMATION
  Report Type: 
  Country: None (occurrence: None)
  Receive Date: 20110302
  Receipt Date: 20101126
  Transmission Date: 20110831
  Serious: Yes (Other)
  Sender: FDA-Public Use
  Company Number: 163-21880-10062598

PATIENT
  Age: 57 Year
  Sex: Male

DRUGS (3)
  1. REVLIMID [Suspect]
     Indication: MYELODYSPLASTIC SYNDROME
     Dosage: 10 MG, DAILY FOR 21 DAYS, PO, 5 MG, DAILY FOR 21 DAYS, PO
     Route: 048
     Dates: start: 20070501
  2. REVLIMID [Suspect]
     Indication: MYELODYSPLASTIC SYNDROME
     Dosage: 10 MG, DAILY FOR 21 DAYS, PO, 5 MG, DAILY FOR 21 DAYS, PO
     Route: 048
     Dates: start: 20100701
  3. REVLIMID [Suspect]

REACTIONS (6)
  - ANAEMIA [None]
  - COLORECTAL CANCER [None]
  - PLATELET COUNT DECREASED [None]
  - VITAMIN D DECREASED [None]
  - RECTAL POLYP [None]
  - BLOOD FOLATE DECREASED [None]
